FAERS Safety Report 25402089 (Version 1)
Quarter: 2025Q2

REPORT INFORMATION
  Report Type: Spontaneous
  Country: IN (occurrence: IN)
  Receive Date: 20250605
  Receipt Date: 20250605
  Transmission Date: 20250717
  Serious: Yes (Other)
  Sender: INSUD PHARMA
  Company Number: IN-INSUD PHARMA-2505IN04224

PATIENT

DRUGS (5)
  1. FOSFOMYCIN [Suspect]
     Active Substance: FOSFOMYCIN
     Indication: Sepsis
     Route: 042
  2. POLYMYXIN B [Suspect]
     Active Substance: POLYMYXIN B
     Indication: Sepsis
     Route: 065
  3. TACROLIMUS [Concomitant]
     Active Substance: TACROLIMUS
     Indication: Immunosuppression
  4. MYCOPHENOLATE MOFETIL [Concomitant]
     Active Substance: MYCOPHENOLATE MOFETIL
     Indication: Immunosuppression
  5. SULBACTAM/CEFTRIAX [Concomitant]
     Indication: Klebsiella infection

REACTIONS (9)
  - Thrombotic microangiopathy [Recovered/Resolved]
  - Complications of transplanted kidney [Recovered/Resolved]
  - Toxicity to various agents [Recovered/Resolved]
  - Microangiopathic haemolytic anaemia [Unknown]
  - Accelerated hypertension [Unknown]
  - Anaemia [Recovering/Resolving]
  - Thrombocytopenia [Recovering/Resolving]
  - Renal tubular necrosis [Unknown]
  - Haemolysis [Unknown]
